FAERS Safety Report 13854127 (Version 2)
Quarter: 2017Q4

REPORT INFORMATION
  Report Type: Spontaneous
  Country: CZ (occurrence: CZ)
  Receive Date: 20170810
  Receipt Date: 20171130
  Transmission Date: 20180320
  Serious: Yes (Hospitalization, Disabling, Other)
  Sender: FDA-Public Use
  Company Number: CZ-PFIZER INC-2017337462

PATIENT
  Sex: Female

DRUGS (14)
  1. PANZYNORM [Suspect]
     Active Substance: PANCRELIPASE
  2. DALACIN [Suspect]
     Active Substance: CLINDAMYCIN
     Indication: DENTAL CARE
     Dates: start: 2012, end: 2012
  3. EUTHYROX [Suspect]
     Active Substance: LEVOTHYROXINE SODIUM
     Indication: THYROID DISORDER
     Dosage: 50 UG, DAILY
     Dates: start: 200204, end: 2007
  4. HELICID [Suspect]
     Active Substance: OMEPRAZOLE
     Indication: GASTROINTESTINAL PAIN
     Dates: start: 201311
  5. PANGROL [Suspect]
     Active Substance: PANCRELIPASE
     Indication: ABDOMINAL DISCOMFORT
     Dates: start: 2013
  6. MIABENE [Concomitant]
     Active Substance: MIANSERIN HYDROCHLORIDE
     Indication: MENTAL DISORDER
     Dosage: UNK
  7. PROSULPIN [Suspect]
     Active Substance: SULPIRIDE
     Indication: SOMATIC SYMPTOM DISORDER
     Dosage: UNK
     Dates: start: 20131228, end: 20140126
  8. TRITTICO [Concomitant]
     Active Substance: TRAZODONE HYDROCHLORIDE
     Dosage: UNK
     Dates: start: 201405, end: 201405
  9. PANCREOLAN FORTE [Suspect]
     Active Substance: DIASTASE\LIPASE\PROTEASE
  10. VERAL (VERAPAMIL HYDROCHLORIDE) [Suspect]
     Active Substance: VERAPAMIL HYDROCHLORIDE
  11. AMITRIPTYLIN [Suspect]
     Active Substance: AMITRIPTYLINE
     Dosage: UNK
  12. FRISIUM [Suspect]
     Active Substance: CLOBAZAM
     Dosage: UNK UNK, AS NEEDED
     Dates: start: 20140117
  13. LETROX [Concomitant]
     Active Substance: LEVOTHYROXINE SODIUM
     Indication: THYROID DISORDER
     Dates: start: 2007
  14. VALDOXAN [Suspect]
     Active Substance: AGOMELATINE
     Indication: IRRITABLE BOWEL SYNDROME
     Dosage: UNK
     Dates: start: 20131226, end: 20131227

REACTIONS (12)
  - Medication error [Unknown]
  - Feeding disorder [Unknown]
  - Abnormal loss of weight [Unknown]
  - Abnormal dreams [Recovered/Resolved]
  - Irritable bowel syndrome [Unknown]
  - Flatulence [Unknown]
  - Abdominal pain upper [Unknown]
  - Gastrointestinal disorder [Unknown]
  - Abdominal pain lower [Unknown]
  - Condition aggravated [Unknown]
  - Lactose intolerance [Unknown]
  - Lactose intolerance [Unknown]

NARRATIVE: CASE EVENT DATE: 2001
